FAERS Safety Report 20572114 (Version 5)
Quarter: 2022Q2

REPORT INFORMATION
  Report Type: Spontaneous
  Country: US (occurrence: US)
  Receive Date: 20220309
  Receipt Date: 20220418
  Transmission Date: 20220721
  Serious: Yes (Other)
  Sender: FDA-Public Use
  Company Number: US-ALLERGAN-2207812US

PATIENT
  Sex: Male

DRUGS (6)
  1. VUITY [Suspect]
     Active Substance: PILOCARPINE HYDROCHLORIDE
     Indication: Presbyopia
     Dosage: 2 GTT, QD
     Route: 047
     Dates: start: 20220126, end: 20220303
  2. FINASTERIDE [Concomitant]
     Active Substance: FINASTERIDE
     Dosage: 5 MG
  3. PREGABALIN [Concomitant]
     Active Substance: PREGABALIN
     Dosage: 225 MG
  4. EYSUVIS [Concomitant]
     Active Substance: LOTEPREDNOL ETABONATE
     Indication: Dry eye
     Dosage: UNK, BID
     Dates: start: 20220203, end: 20220304
  5. Biotrue Hydration Boost Eye preservative free [Concomitant]
     Indication: Dry eye
     Dosage: 1 GTT, BID
     Route: 047
     Dates: start: 20220303
  6. Biotrue Hydration Boost Eye preservative free [Concomitant]
     Dosage: 2 UNK
     Route: 047
     Dates: start: 20220121, end: 20220303

REACTIONS (13)
  - Retinal detachment [Recovering/Resolving]
  - Blindness transient [Recovering/Resolving]
  - Motion sickness [Not Recovered/Not Resolved]
  - Loss of personal independence in daily activities [Not Recovered/Not Resolved]
  - Oscillopsia [Not Recovered/Not Resolved]
  - Visual impairment [Not Recovered/Not Resolved]
  - Miosis [Unknown]
  - Photophobia [Unknown]
  - Halo vision [Recovered/Resolved]
  - Eye disorder [Recovered/Resolved]
  - Insomnia [Not Recovered/Not Resolved]
  - Vision blurred [Not Recovered/Not Resolved]
  - Headache [Not Recovered/Not Resolved]

NARRATIVE: CASE EVENT DATE: 20220126
